FAERS Safety Report 7323064 (Version 3)
Quarter: 2013Q1

REPORT INFORMATION
  Report Type: Spontaneous
  Country: DE (occurrence: DE)
  Receive Date: 20100317
  Receipt Date: 20130326
  Transmission Date: 20140127
  Serious: Yes (Death, Congenital Anomaly)
  Sender: FDA-Public Use
  Company Number: DE-RB-004612-10

PATIENT
  Age: 1 Day
  Sex: Male

DRUGS (2)
  1. SUBOXONE [Suspect]
     Indication: MATERNAL EXPOSURE DURING PREGNANCY
     Dosage: DOSING DETAILS UNKNOWN
     Route: 064
     Dates: start: 20090807, end: 20100308
  2. SUBUTEX [Suspect]
     Indication: MATERNAL EXPOSURE DURING PREGNANCY
     Dosage: DOSING DETAILS UNKNOWN
     Route: 064
     Dates: end: 20100308

REACTIONS (13)
  - Foetal exposure during pregnancy [Recovered/Resolved]
  - Multiple congenital abnormalities [Unknown]
  - Subarachnoid haemorrhage neonatal [Fatal]
  - Amniotic infection syndrome of Blane [Unknown]
  - Neonatal respiratory distress syndrome [Unknown]
  - Pericardial effusion [Unknown]
  - Ascites [Unknown]
  - Congenital genital malformation [Unknown]
  - Klinefelter^s syndrome [Unknown]
  - Hypoglycaemia neonatal [Unknown]
  - Hyponatraemia [Unknown]
  - Hyperkalaemia [Unknown]
  - Premature baby [Recovered/Resolved]
